FAERS Safety Report 6755411-6 (Version None)
Quarter: 2010Q2

REPORT INFORMATION
  Report Type: 
  Country: None (occurrence: None)
  Receive Date: 20100604
  Receipt Date: 20100527
  Transmission Date: 20101027
  Serious: Yes (Hospitalization, Other)
  Sender: FDA-Public Use
  Company Number: US-JNJFOC-20100106337

PATIENT
  Sex: Male

DRUGS (3)
  1. LEVAQUIN [Suspect]
     Indication: SINUSITIS
     Route: 048
  2. STEROID INJECTION NOS [Suspect]
     Indication: PAIN
     Route: 065
  3. CIPRO [Suspect]
     Indication: DRUG USE FOR UNKNOWN INDICATION
     Route: 065

REACTIONS (4)
  - ARTHROPATHY [None]
  - LUMBAR SPINAL STENOSIS [None]
  - OSTEOARTHRITIS [None]
  - TENDON RUPTURE [None]
